FAERS Safety Report 8341112-X (Version None)
Quarter: 2012Q2

REPORT INFORMATION
  Report Type: 
  Country: None (occurrence: None)
  Receive Date: 20120507
  Receipt Date: 20120426
  Transmission Date: 20120825
  Serious: Yes (Hospitalization)
  Sender: FDA-Public Use
  Company Number: JP-GLAXOSMITHKLINE-B0684058A

PATIENT
  Sex: Female
  Weight: 9 kg

DRUGS (11)
  1. LAMICTAL [Suspect]
     Indication: LENNOX-GASTAUT SYNDROME
     Dosage: 2MG PER DAY
     Route: 048
     Dates: start: 20100603, end: 20100610
  2. DEPAKENE [Concomitant]
     Indication: LENNOX-GASTAUT SYNDROME
     Dosage: 250MG PER DAY
     Route: 048
  3. FAMOTIDINE [Concomitant]
     Route: 048
  4. LAMICTAL [Suspect]
     Dosage: 10MG PER DAY
     Route: 048
     Dates: start: 20100708, end: 20100802
  5. LAMICTAL [Suspect]
     Dosage: 20MG PER DAY
     Route: 048
     Dates: start: 20100902, end: 20100912
  6. LAMICTAL [Suspect]
     Dosage: 15MG PER DAY
     Route: 048
     Dates: start: 20101202, end: 20110210
  7. ZONISAMIDE [Concomitant]
     Indication: LENNOX-GASTAUT SYNDROME
     Dosage: 80MG PER DAY
     Route: 048
  8. UNKNOWN DRUG [Concomitant]
     Route: 048
  9. LAMICTAL [Suspect]
     Dosage: 6MG PER DAY
     Route: 048
     Dates: start: 20100611, end: 20100707
  10. LAMICTAL [Suspect]
     Dosage: 15MG PER DAY
     Route: 048
     Dates: start: 20100803, end: 20100901
  11. LAMICTAL [Suspect]
     Dosage: 15MG PER DAY
     Route: 048
     Dates: start: 20100913, end: 20101116

REACTIONS (5)
  - AGITATION [None]
  - TOXICITY TO VARIOUS AGENTS [None]
  - VOMITING [None]
  - MOOD ALTERED [None]
  - HYPERVIGILANCE [None]
